FAERS Safety Report 9284939 (Version 1)
Quarter: 2013Q2

REPORT INFORMATION
  Report Type: Spontaneous
  Country: MY (occurrence: MY)
  Receive Date: 20130513
  Receipt Date: 20130513
  Transmission Date: 20140414
  Serious: Yes (Other)
  Sender: FDA-Public Use
  Company Number: MY-RANBAXY-2013R3-68675

PATIENT
  Age: 81 Year
  Sex: Male

DRUGS (5)
  1. INVORIL [Suspect]
     Indication: HYPERTENSION
     Dosage: 5 MG DAILY
     Route: 048
  2. DICLORAN [Suspect]
     Indication: GOUTY ARTHRITIS
     Dosage: 150 MG DAILY
     Route: 048
  3. PRAZOSIN [Concomitant]
     Indication: PRODUCT USED FOR UNKNOWN INDICATION
     Dosage: UNK
     Route: 065
  4. NIFEDIPINE [Concomitant]
     Indication: PRODUCT USED FOR UNKNOWN INDICATION
     Dosage: UNK
     Route: 065
  5. RANITIDINE [Concomitant]
     Indication: PRODUCT USED FOR UNKNOWN INDICATION
     Dosage: UNK
     Route: 065

REACTIONS (5)
  - Chest discomfort [Recovered/Resolved]
  - Dizziness [Recovered/Resolved]
  - Hyperkalaemia [Recovered/Resolved]
  - Electrocardiogram T wave peaked [Recovered/Resolved]
  - Renal failure acute [Recovered/Resolved]
